FAERS Safety Report 11080683 (Version 1)
Quarter: 2015Q2

REPORT INFORMATION
  Report Type: Spontaneous
  Country: IT (occurrence: IT)
  Receive Date: 20150501
  Receipt Date: 20150501
  Transmission Date: 20150821
  Serious: Yes (Life-Threatening, Hospitalization, Other)
  Sender: FDA-Public Use
  Company Number: IT-BAYER-2015-153833

PATIENT
  Age: 50 Year
  Sex: Female

DRUGS (4)
  1. METHYLDOPA. [Suspect]
     Active Substance: METHYLDOPA
     Indication: HYPERTENSION
  2. NIFEDIPINE. [Suspect]
     Active Substance: NIFEDIPINE
     Indication: HYPERTENSION
     Dosage: 30 MG, DAILY POST-PARTUM
     Route: 048
  3. METHYLDOPA. [Suspect]
     Active Substance: METHYLDOPA
     Indication: GESTATIONAL HYPERTENSION
     Dosage: 500 MG, QD
     Route: 048
  4. NIFEDIPINE. [Suspect]
     Active Substance: NIFEDIPINE
     Indication: GESTATIONAL HYPERTENSION
     Dosage: 30 MG, QD
     Route: 042

REACTIONS (8)
  - Thrombotic thrombocytopenic purpura [Recovered/Resolved]
  - Drug ineffective [None]
  - Caesarean section [None]
  - Post procedural haematoma [Recovered/Resolved]
  - Headache [None]
  - Premature delivery [None]
  - Hypertension [None]
  - Maternal exposure during pregnancy [None]
